FAERS Safety Report 21369353 (Version 1)
Quarter: 2022Q3

REPORT INFORMATION
  Report Type: Spontaneous
  Country: US (occurrence: None)
  Receive Date: 20220922
  Receipt Date: 20220922
  Transmission Date: 20221027
  Serious: Yes (Other)
  Sender: FDA-Public Use
  Company Number: None

PATIENT
  Age: 70 Year
  Sex: Female
  Weight: 72 kg

DRUGS (3)
  1. GADOLINIUM [Suspect]
     Active Substance: GADOLINIUM
  2. multi vitamins- D [Concomitant]
  3. multi vitamins- B- [Concomitant]

REACTIONS (10)
  - Burning sensation [None]
  - Depressed level of consciousness [None]
  - Tinnitus [None]
  - Headache [None]
  - Visual impairment [None]
  - Alopecia [None]
  - Ageusia [None]
  - Anosmia [None]
  - Muscle atrophy [None]
  - Bone pain [None]
